FAERS Safety Report 6357924-8 (Version None)
Quarter: 2009Q3

REPORT INFORMATION
  Report Type: 
  Country: None (occurrence: None)
  Receive Date: 20090916
  Receipt Date: 20090908
  Transmission Date: 20100115
  Serious: Yes (Other)
  Sender: FDA-Public Use
  Company Number: FR-ASTRAZENECA-2009SE11733

PATIENT
  Age: 72 Year
  Sex: Male
  Weight: 60 kg

DRUGS (7)
  1. ROPIVACAINE HYDROCHLORIDE [Suspect]
     Indication: NERVE BLOCK
     Dosage: 15 ML MIXTURE OF 50% ROPIVACINE AND 50 % MEPIVACAINE
     Route: 053
  2. ROPIVACAINE HYDROCHLORIDE [Suspect]
     Dosage: 10 ML MIXTURE OF 50% ROPIVACINE AND 50 % MEPIVACAINE
     Route: 053
  3. ROPIVACAINE HYDROCHLORIDE [Suspect]
     Dosage: 5  ML MIXTURE OF 50% ROPIVACINE AND 50 % MEPIVACAINE
     Route: 053
  4. MEPIVACAINE HCL [Suspect]
     Indication: NERVE BLOCK
     Dosage: 15 ML MIXTURE OF 50% ROPIVACINE AND 50 % MEPIVACAINE
     Route: 053
  5. MEPIVACAINE HCL [Suspect]
     Dosage: 10 ML MIXTURE OF 50% ROPIVACINE AND 50 % MEPIVACAINE
     Route: 053
  6. MEPIVACAINE HCL [Suspect]
     Dosage: 5 ML MIXTURE OF 50% ROPIVACINE AND 50 % MEPIVACAINE
     Route: 053
  7. INSULIN [Concomitant]

REACTIONS (1)
  - GRAND MAL CONVULSION [None]
